FAERS Safety Report 20368655 (Version 3)
Quarter: 2022Q1

REPORT INFORMATION
  Report Type: Spontaneous
  Country: US (occurrence: US)
  Receive Date: 20220124
  Receipt Date: 20220213
  Transmission Date: 20220423
  Serious: No
  Sender: FDA-Public Use
  Company Number: US-SA-SAC20220119001209

PATIENT
  Sex: Female

DRUGS (22)
  1. LEFLUNOMIDE [Suspect]
     Active Substance: LEFLUNOMIDE
  2. METHOTREXATE [Suspect]
     Active Substance: METHOTREXATE
  3. FOLIC ACID [Suspect]
     Active Substance: FOLIC ACID
  4. LEVETIRACETAM [Suspect]
     Active Substance: LEVETIRACETAM
  5. ATORVASTATIN [Suspect]
     Active Substance: ATORVASTATIN
  6. HYDROXYCHLOROQUINE [Suspect]
     Active Substance: HYDROXYCHLOROQUINE
  7. LEVOTHYROXINE [Suspect]
     Active Substance: LEVOTHYROXINE
  8. TIZANIDINE [Suspect]
     Active Substance: TIZANIDINE
  9. TOFACITINIB CITRATE [Suspect]
     Active Substance: TOFACITINIB CITRATE
     Dosage: 11 MG, QD
     Route: 048
  10. METOPROLOL [Suspect]
     Active Substance: METOPROLOL
  11. AMLODIPINE [Suspect]
     Active Substance: AMLODIPINE BESYLATE
  12. BENAZEPRIL [Suspect]
     Active Substance: BENAZEPRIL HYDROCHLORIDE
  13. NITROGLYCERIN [Concomitant]
     Active Substance: NITROGLYCERIN
  14. ACETAMINOPHEN\ASCORBIC ACID [Concomitant]
     Active Substance: ACETAMINOPHEN\ASCORBIC ACID
  15. VITAMIN D NOS [Concomitant]
     Active Substance: VITAMIN D NOS
  16. LEVOTHYROXINE SODIUM [Suspect]
     Active Substance: LEVOTHYROXINE SODIUM
     Dosage: UNK
  17. TIZANIDINE HYDROCHLORIDE [Suspect]
     Active Substance: TIZANIDINE HYDROCHLORIDE
     Dosage: UNK
  18. METOPROLOL SUCCINATE [Suspect]
     Active Substance: METOPROLOL SUCCINATE
  19. AMLODIPINE BESYLATE [Suspect]
     Active Substance: AMLODIPINE BESYLATE
     Dosage: UNK
  20. VITAMIN D NOS [Concomitant]
     Active Substance: VITAMIN D NOS
  21. ASPIRIN [Concomitant]
     Active Substance: ASPIRIN
  22. NITROGLYCERIN [Concomitant]
     Active Substance: NITROGLYCERIN

REACTIONS (5)
  - Illness [Unknown]
  - Fatigue [Unknown]
  - Sluggishness [Unknown]
  - Malaise [Unknown]
  - Product dose omission issue [Unknown]
